FAERS Safety Report 6781942-9 (Version None)
Quarter: 2010Q2

REPORT INFORMATION
  Report Type: 
  Country: None (occurrence: None)
  Receive Date: 20100621
  Receipt Date: 20100611
  Transmission Date: 20101027
  Serious: Yes (Hospitalization, Other)
  Sender: FDA-Public Use
  Company Number: US-ELI_LILLY_AND_COMPANY-US201006004353

PATIENT
  Age: 42 Year
  Sex: Male
  Weight: 147.39 kg

DRUGS (2)
  1. EFFIENT [Suspect]
     Indication: PERCUTANEOUS CORONARY INTERVENTION
     Dosage: 60 MG, UNK
     Dates: start: 20100602, end: 20100602
  2. EFFIENT [Suspect]
     Dosage: 10 MG, DAILY (1/D)
     Dates: start: 20100603

REACTIONS (3)
  - CHEST PAIN [None]
  - CORONARY REVASCULARISATION [None]
  - VESSEL PUNCTURE SITE HAEMATOMA [None]
